FAERS Safety Report 6070509-6 (Version None)
Quarter: 2009Q1

REPORT INFORMATION
  Report Type: 
  Country: None (occurrence: None)
  Receive Date: 20090209
  Receipt Date: 20090129
  Transmission Date: 20090719
  Serious: Yes (Other)
  Sender: FDA-Public Use
  Company Number: DE-JNJFOC-20081202869

PATIENT
  Sex: Male

DRUGS (7)
  1. REMICADE [Suspect]
     Route: 042
  2. REMICADE [Suspect]
     Route: 042
  3. REMICADE [Suspect]
     Dosage: AT WEEK 0, 2, AND 6
     Route: 042
  4. REMICADE [Suspect]
     Indication: CROHN'S DISEASE
     Route: 042
  5. AZATHIOPRINE [Concomitant]
  6. DIMETINDENE MALEATE [Concomitant]
     Indication: PREMEDICATION
  7. PREDNISOLONE [Concomitant]
     Indication: PREMEDICATION
     Route: 042

REACTIONS (8)
  - ABDOMINAL PAIN [None]
  - ERYTHEMA [None]
  - HYPOTENSION [None]
  - INFUSION RELATED REACTION [None]
  - NAUSEA [None]
  - PYREXIA [None]
  - THERAPEUTIC RESPONSE DECREASED [None]
  - VERTIGO [None]
